FAERS Safety Report 15384520 (Version 1)
Quarter: 2018Q3

REPORT INFORMATION
  Report Type: Spontaneous
  Country: US (occurrence: US)
  Receive Date: 20180907
  Receipt Date: 20180907
  Transmission Date: 20181010
  Serious: Yes (Life-Threatening)
  Sender: FDA-Public Use
  Company Number: None

PATIENT
  Age: 63 Year
  Sex: Female
  Weight: 45.09 kg

DRUGS (15)
  1. WELLBUTRIN [Concomitant]
     Active Substance: BUPROPION HYDROCHLORIDE
  2. PLAVIX [Concomitant]
     Active Substance: CLOPIDOGREL BISULFATE
  3. VITAMIN D3 [Concomitant]
     Active Substance: CHOLECALCIFEROL
  4. MIRALAX [Concomitant]
     Active Substance: POLYETHYLENE GLYCOL 3350
  5. ASPIRIN. [Concomitant]
     Active Substance: ASPIRIN
  6. PROBIOTIC [Concomitant]
     Active Substance: PROBIOTICS NOS
  7. PREVACID [Suspect]
     Active Substance: LANSOPRAZOLE
  8. CARAFATE [Concomitant]
     Active Substance: SUCRALFATE
  9. ARMOUR THYROID [Concomitant]
     Active Substance: THYROID, PORCINE
  10. TOPAMAX [Concomitant]
     Active Substance: TOPIRAMATE
  11. COREG [Concomitant]
     Active Substance: CARVEDILOL
  12. ROBAXIN [Concomitant]
     Active Substance: METHOCARBAMOL
  13. BRILINTA [Suspect]
     Active Substance: TICAGRELOR
     Indication: STENT PLACEMENT
  14. LIPITOR [Concomitant]
     Active Substance: ATORVASTATIN CALCIUM
  15. FIROCET [Concomitant]

REACTIONS (5)
  - Chest pain [None]
  - Palpitations [None]
  - Dysarthria [None]
  - Dyspnoea [None]
  - Therapy cessation [None]

NARRATIVE: CASE EVENT DATE: 20180904
